FAERS Safety Report 15015868 (Version 5)
Quarter: 2019Q2

REPORT INFORMATION
  Report Type: Report from Study
  Country: PL (occurrence: PL)
  Receive Date: 20180615
  Receipt Date: 20190419
  Transmission Date: 20190711
  Serious: Yes (Hospitalization, Other)
  Sender: FDA-Public Use
  Company Number: PL-AUROBINDO-AUR-APL-2018-027953

PATIENT

DRUGS (18)
  1. LACIDIPINE [Suspect]
     Active Substance: LACIDIPINE
     Dosage: 4 MILLIGRAM, ONCE A DAY (2 MG, BID )
     Route: 048
  2. INDAPAMIDE. [Suspect]
     Active Substance: INDAPAMIDE
     Indication: HYPERTENSION
     Dosage: 5 MILLIGRAM DAILY; IN EVENING
     Route: 048
  3. INDAPAMIDE. [Suspect]
     Active Substance: INDAPAMIDE
     Dosage: 1.5 MG 1 X DAILY IN THE MORNING
     Route: 065
  4. PERINDOPRIL ZENTIVA [Suspect]
     Active Substance: PERINDOPRIL ERBUMINE
     Dosage: 5 MG, AM (FIXED-DOSE COMBINATION)
     Route: 065
  5. CAPTOPRIL. [Suspect]
     Active Substance: CAPTOPRIL
     Indication: HYPERTENSIVE CRISIS
     Dosage: 25 MG, SINGLE DOSE
     Route: 060
  6. METOPROLOL. [Suspect]
     Active Substance: METOPROLOL
     Indication: HYPERTENSION
     Dosage: 25 MILLIGRAM DAILY; IN MORNING
     Route: 048
  7. LACIDIPINE [Suspect]
     Active Substance: LACIDIPINE
     Dosage: INCREASE IN THE EVENING DOSE TO 4 MG
     Route: 048
  8. FUROSEMIDE. [Concomitant]
     Active Substance: FUROSEMIDE
     Indication: HYPERTENSIVE CRISIS
     Dosage: 20 MG, UNK
     Route: 042
  9. BISOPROLOL [Suspect]
     Active Substance: BISOPROLOL
     Indication: HYPERTENSION
     Dosage: 5 MILLIGRAM, UNK
     Route: 065
  10. PERINDOPRIL ZENTIVA [Suspect]
     Active Substance: PERINDOPRIL ERBUMINE
     Indication: HYPERTENSION
     Dosage: UNK
     Route: 065
  11. AMLODIPINE [Suspect]
     Active Substance: AMLODIPINE BESYLATE
     Dosage: 10 MG IN ONE DOSE OF THE MORNING
     Route: 065
  12. RAMIPRIL. [Suspect]
     Active Substance: RAMIPRIL
     Indication: HYPERTENSION
     Dosage: 5 MILLIGRAM, ONCE A DAY (IN THE EVENING)
     Route: 048
  13. INDAPAMIDE. [Suspect]
     Active Substance: INDAPAMIDE
     Dosage: 1.25 MILLIGRAM, ONCE A DAY AM (FIXED-DOSE COMBINATION)
     Route: 065
  14. URAPIDIL [Concomitant]
     Active Substance: URAPIDIL
     Indication: HYPERTENSIVE CRISIS
     Dosage: UNK
     Route: 016
  15. URAPIDIL [Concomitant]
     Active Substance: URAPIDIL
     Dosage: UNK
     Route: 042
  16. AMLODIPINE [Suspect]
     Active Substance: AMLODIPINE BESYLATE
     Indication: HYPERTENSION
     Dosage: UNK
     Route: 065
  17. LACIDIPINE [Suspect]
     Active Substance: LACIDIPINE
     Indication: HYPERTENSION
     Dosage: 4 MILLIGRAM, ONCE A DAY (EVENING)
     Route: 048
  18. METOPROLOL;RAMIPRIL [Suspect]
     Active Substance: METOPROLOL\RAMIPRIL
     Indication: PRODUCT USED FOR UNKNOWN INDICATION
     Dosage: 4 MILLIGRAM, ONCE A DAY
     Route: 048

REACTIONS (7)
  - Product dose omission [Unknown]
  - Malaise [Recovering/Resolving]
  - Treatment failure [Recovered/Resolved]
  - Treatment noncompliance [Unknown]
  - Blood pressure increased [Recovering/Resolving]
  - Blood pressure fluctuation [Recovering/Resolving]
  - Drug ineffective [Unknown]
